FAERS Safety Report 5692243-4 (Version None)
Quarter: 2008Q2

REPORT INFORMATION
  Report Type: 
  Country: None (occurrence: None)
  Receive Date: 20080402
  Receipt Date: 20080327
  Transmission Date: 20081010
  Serious: No
  Sender: FDA-Public Use
  Company Number: DE-ALLERGAN-0803313US

PATIENT
  Sex: Female

DRUGS (2)
  1. BOTOX [Suspect]
     Indication: FACIAL SPASM
     Dates: start: 20050101, end: 20050101
  2. BOTOX [Suspect]
     Dosage: UNK, UNK
     Dates: start: 20080101, end: 20080101

REACTIONS (1)
  - BLOOD PRESSURE INCREASED [None]
